FAERS Safety Report 4356299-3 (Version None)
Quarter: 2004Q2

REPORT INFORMATION
  Report Type: 
  Country: None (occurrence: None)
  Receive Date: 20040510
  Receipt Date: 20040510
  Transmission Date: 20050107
  Serious: Yes (Hospitalization)
  Sender: FDA-Public Use
  Company Number: None

PATIENT
  Age: 69 Year
  Sex: Female
  Weight: 70 kg

DRUGS (2)
  1. GEODON [Suspect]
     Indication: SCHIZOAFFECTIVE DISORDER
     Dosage: 80 MG BID PO
     Route: 048
     Dates: start: 20040201
  2. GEODON [Suspect]
     Indication: SCHIZOAFFECTIVE DISORDER
     Dosage: 80 MG BID PO
     Route: 048
     Dates: start: 20040310

REACTIONS (3)
  - ELECTROCARDIOGRAM QT PROLONGED [None]
  - FALL [None]
  - SYNCOPE [None]
